FAERS Safety Report 25699001 (Version 4)
Quarter: 2025Q3

REPORT INFORMATION
  Report Type: Report from Study
  Country: CO (occurrence: CO)
  Receive Date: 20250819
  Receipt Date: 20250925
  Transmission Date: 20251020
  Serious: Yes (Other)
  Sender: TAKEDA
  Company Number: CO-TAKEDA-2025TUS007012

PATIENT
  Age: 47 Year
  Sex: Female
  Weight: 76 kg

DRUGS (4)
  1. VEDOLIZUMAB [Suspect]
     Active Substance: VEDOLIZUMAB
     Indication: Crohn^s disease
  2. VEDOLIZUMAB [Suspect]
     Active Substance: VEDOLIZUMAB
  3. VEDOLIZUMAB [Suspect]
     Active Substance: VEDOLIZUMAB
     Indication: Crohn^s disease
     Dosage: 108 MILLIGRAM, Q2WEEKS
     Dates: start: 20250502
  4. VEDOLIZUMAB [Suspect]
     Active Substance: VEDOLIZUMAB

REACTIONS (16)
  - Uterine haemorrhage [Unknown]
  - Pain [Unknown]
  - Cough [Recovered/Resolved]
  - Fatigue [Recovered/Resolved]
  - Hypoglycaemia [Unknown]
  - Heart rate abnormal [Unknown]
  - Pelvic discomfort [Unknown]
  - Chest pain [Unknown]
  - Dizziness [Recovered/Resolved]
  - Back pain [Unknown]
  - Rash [Unknown]
  - Treatment noncompliance [Unknown]
  - Rhinorrhoea [Unknown]
  - Malaise [Unknown]
  - Oropharyngeal pain [Unknown]
  - Nausea [Unknown]

NARRATIVE: CASE EVENT DATE: 20250117
